FAERS Safety Report 6825962-4 (Version None)
Quarter: 2010Q3

REPORT INFORMATION
  Report Type: 
  Country: None (occurrence: None)
  Receive Date: 20100706
  Receipt Date: 20100323
  Transmission Date: 20110219
  Serious: Yes (Other)
  Sender: FDA-Public Use
  Company Number: 2010037979

PATIENT
  Age: 84 Year
  Sex: Female
  Weight: 39.5 kg

DRUGS (1)
  1. SERTRALINE HCL (SERTRALINE HCL) FILM-COATED TABLET [Suspect]
     Indication: DEPRESSION
     Dosage: 25 MG, 1X/DAY, ORAL
     Route: 048
     Dates: start: 20100205, end: 20100208

REACTIONS (1)
  - LOSS OF CONSCIOUSNESS [None]
